FAERS Safety Report 17593548 (Version 13)
Quarter: 2023Q1

REPORT INFORMATION
  Report Type: Report from Study
  Country: GB (occurrence: GB)
  Receive Date: 20200327
  Receipt Date: 20230131
  Transmission Date: 20230418
  Serious: Yes (Death, Hospitalization, Disabling, Other)
  Sender: FDA-Public Use
  Company Number: GB-ROCHE-1710882

PATIENT
  Age: 47 Year
  Sex: Female

DRUGS (60)
  1. LETROZOLE [Suspect]
     Active Substance: LETROZOLE
     Indication: Breast cancer
     Dosage: 2.5 MILLIGRAM, QD
     Route: 048
     Dates: start: 20160308, end: 20161123
  2. LETROZOLE [Suspect]
     Active Substance: LETROZOLE
     Indication: Breast cancer metastatic
  3. TRASTUZUMAB [Suspect]
     Active Substance: TRASTUZUMAB
     Indication: HER2 positive breast cancer
     Dosage: 525 MILLIGRAM, Q3W,525 MILLIGRAM (LOADING DOSE)1 DOSE/3 WEEKS
     Route: 042
     Dates: start: 20151023, end: 20151023
  4. TRASTUZUMAB [Suspect]
     Active Substance: TRASTUZUMAB
     Indication: Breast cancer
     Dosage: 400 MILLIGRAM, Q3W (MAINTENANCE DOSE)1 DOSE/3 WEEKS
     Route: 042
     Dates: start: 20151120, end: 20151120
  5. TRASTUZUMAB [Suspect]
     Active Substance: TRASTUZUMAB
     Indication: Breast cancer metastatic
     Dosage: 400 MILLIGRAM, Q3W (MAINTENANCE DOSE)(START:20-NOV-2015)
     Route: 042
     Dates: start: 20151120, end: 20161104
  6. TRASTUZUMAB [Suspect]
     Active Substance: TRASTUZUMAB
     Dosage: 240 MILLIGRAM, Q3W (240 MG, Q3W, 1 DOSE/3 WEEKS)
     Route: 042
     Dates: start: 20161201, end: 20170302
  7. TRASTUZUMAB [Suspect]
     Active Substance: TRASTUZUMAB
     Dosage: 200 MILLIGRAM, Q3W (240 MG, Q3W, 1 DOSE/3 WEEKS)
     Route: 042
     Dates: start: 20170330, end: 20170608
  8. DOCETAXEL [Suspect]
     Active Substance: DOCETAXEL
     Indication: Breast cancer metastatic
     Dosage: 132 MILLIGRAM, Q3W (1 DOSE/3 WEEKS(LOADING DOSE)START DATE: 22-OCT-2015 ))
     Route: 042
     Dates: start: 20151022, end: 20151022
  9. DOCETAXEL [Suspect]
     Active Substance: DOCETAXEL
     Indication: Breast cancer
     Dosage: 108 MILLIGRAM,Q3W (MAINTANCE DOSE)
     Route: 042
     Dates: start: 20151120, end: 20160222
  10. DOCETAXEL [Suspect]
     Active Substance: DOCETAXEL
     Dosage: 108 MILLIGRAM, Q3W ((PLANNED NUMBER OF CYCLES COMPLETED)
     Route: 042
     Dates: start: 20151120, end: 20160222
  11. IRINOTECAN [Suspect]
     Active Substance: IRINOTECAN
     Indication: HER2 positive breast cancer
     Dosage: 132 MILLIGRAM, QD
     Route: 042
     Dates: start: 20151022, end: 20151022
  12. IRINOTECAN [Suspect]
     Active Substance: IRINOTECAN
     Dosage: 108 MILLIGRAM, Q3W
     Route: 042
     Dates: start: 20151120, end: 20160222
  13. ADO-TRASTUZUMAB EMTANSINE [Suspect]
     Active Substance: ADO-TRASTUZUMAB EMTANSINE
     Indication: Breast cancer metastatic
     Dosage: 240 MILLIGRAM, Q3W (START DATE: 01-DEC-2016)
     Route: 042
     Dates: end: 20170302
  14. ADO-TRASTUZUMAB EMTANSINE [Suspect]
     Active Substance: ADO-TRASTUZUMAB EMTANSINE
     Dosage: 200 MILLIGRAM, Q3W
     Route: 042
     Dates: start: 20170330, end: 20170608
  15. PERTUZUMAB [Suspect]
     Active Substance: PERTUZUMAB
     Indication: HER2 positive breast cancer
     Dosage: 840 MILLIGRAM (LOADING DOSE) (START: 23-OCT-2015)
     Route: 042
     Dates: start: 20151023, end: 20151023
  16. PERTUZUMAB [Suspect]
     Active Substance: PERTUZUMAB
     Indication: Breast cancer
     Dosage: 420 MILLIGRAM, Q3W (MAINTENANCE DOSE)
     Route: 042
     Dates: start: 20151120, end: 20151120
  17. PERTUZUMAB [Suspect]
     Active Substance: PERTUZUMAB
     Indication: Breast cancer metastatic
     Dosage: 420 MILLIGRAM, Q3W (MAINTENANCE DOSE)
     Route: 042
     Dates: start: 20151120, end: 20161104
  18. TRIMETHOPRIM [Concomitant]
     Active Substance: TRIMETHOPRIM
     Indication: Product used for unknown indication
     Dosage: 50 MILLIGRAM
     Route: 065
     Dates: start: 20170915, end: 20170919
  19. LANSOPRAZOLE [Concomitant]
     Active Substance: LANSOPRAZOLE
     Indication: Prophylaxis
     Dosage: 30 MILLIGRAM, QD
     Route: 048
     Dates: start: 20170728, end: 20170905
  20. ZOLEDRONIC ACID [Concomitant]
     Active Substance: ZOLEDRONIC ACID
     Indication: Product used for unknown indication
     Dosage: 4 MILLIGRAM, MONTHLY
     Route: 042
     Dates: start: 20151022, end: 20170713
  21. DEXAMETHASONE [Concomitant]
     Active Substance: DEXAMETHASONE
     Indication: Prophylaxis
     Dosage: 8 MILLIGRAM (FOR 3 DAYS STARTING BEFORE CHEMO)
     Route: 048
     Dates: start: 20151210, end: 20160222
  22. DEXAMETHASONE [Concomitant]
     Active Substance: DEXAMETHASONE
     Indication: Disease progression
     Dosage: 8 MILLIGRAM, BID (0.5 DAY)
     Route: 048
     Dates: start: 20170803, end: 20170809
  23. DEXAMETHASONE [Concomitant]
     Active Substance: DEXAMETHASONE
     Indication: Metastases to central nervous system
     Dosage: 2 MILLIGRAM, QD
     Route: 048
     Dates: start: 20170726, end: 20170803
  24. DEXAMETHASONE [Concomitant]
     Active Substance: DEXAMETHASONE
     Dosage: 4 MILLIGRAM, BID (0.5 DAY)
     Route: 048
     Dates: start: 20170809, end: 20170919
  25. DEXAMETHASONE [Concomitant]
     Active Substance: DEXAMETHASONE
     Dosage: 2 MILLIGRAM, QD
     Route: 048
     Dates: start: 20170726, end: 20170803
  26. DEXAMETHASONE [Concomitant]
     Active Substance: DEXAMETHASONE
     Dosage: 16 MILLIGRAM, BID
     Route: 048
     Dates: start: 20170803, end: 20170809
  27. DEXAMETHASONE [Concomitant]
     Active Substance: DEXAMETHASONE
     Dosage: 8 MG, UNK
     Route: 048
     Dates: start: 20170809, end: 20170919
  28. DEXAMETHASONE [Concomitant]
     Active Substance: DEXAMETHASONE
     Dosage: 2 MILLIGRAM, QD
     Route: 048
     Dates: start: 20170728, end: 20170803
  29. HYDROCORTISONE [Concomitant]
     Active Substance: HYDROCORTISONE
     Indication: Prophylaxis
     Dosage: 100 MILLIGRAM, Q3W (3/WEEK 0.3 WEEK)
     Route: 042
     Dates: start: 20151022, end: 20160222
  30. HYDROCORTISONE [Concomitant]
     Active Substance: HYDROCORTISONE
     Dosage: 300 MILLIGRAM, QW
     Route: 042
     Dates: start: 20151022, end: 20160222
  31. FILGRASTIM [Concomitant]
     Active Substance: FILGRASTIM
     Indication: Prophylaxis
     Dosage: 30 MICROGRAM
     Route: 058
  32. FILGRASTIM [Concomitant]
     Active Substance: FILGRASTIM
     Dosage: QD FOR SEVEN DAYS FROM DAY 4 OF CYCLE
     Route: 058
     Dates: start: 20151210, end: 20160305
  33. FILGRASTIM [Concomitant]
     Active Substance: FILGRASTIM
     Dosage: 300 MICROGRAM, QD (INJECTION)
     Route: 058
     Dates: start: 20151120, end: 20151127
  34. FILGRASTIM [Concomitant]
     Active Substance: FILGRASTIM
     Dosage: 300 MILLIGRAM (FOR SEVEN DAYS FROM DAY 4 OF CYCLE)
     Route: 058
     Dates: start: 20151210, end: 20160305
  35. CHLORPHENIRAMINE [Concomitant]
     Active Substance: CHLORPHENIRAMINE
     Indication: Prophylaxis
     Dosage: 10 MILLIGRAM (0.33 WEEK)(10 MILLIGRAM, 3/WEEK  )
     Route: 042
     Dates: start: 20151022, end: 20160222
  36. CHLORPHENIRAMINE [Concomitant]
     Active Substance: CHLORPHENIRAMINE
     Dosage: 30 MILLIGRAM, QW
     Route: 042
     Dates: start: 20151022, end: 20160222
  37. CHLORPHENIRAMINE [Concomitant]
     Active Substance: CHLORPHENIRAMINE
     Dosage: 100 MILLIGRAM, QW
     Route: 042
     Dates: start: 20151022, end: 20160222
  38. MIDAZOLAM [Concomitant]
     Active Substance: MIDAZOLAM
     Indication: Palliative care
     Dosage: 2.5 MILLIGRAM, PRN
     Route: 058
  39. MIDAZOLAM [Concomitant]
     Active Substance: MIDAZOLAM
     Dosage: 2.5 MILLIGRAM, PRN
     Route: 058
     Dates: start: 20170918, end: 20170920
  40. GLYCOPYRRONIUM [Concomitant]
     Active Substance: GLYCOPYRRONIUM
     Indication: Palliative care
     Dosage: 400 MICROGRAM, PRN
     Route: 058
     Dates: start: 20170919, end: 20170920
  41. MORPHINE SULFATE [Concomitant]
     Active Substance: MORPHINE SULFATE
     Indication: Palliative care
     Dosage: 2.5 MILLIGRAM, PRN
     Route: 058
     Dates: start: 20170918, end: 20170920
  42. HALOPERIDOL [Concomitant]
     Active Substance: HALOPERIDOL
     Indication: Palliative care
     Dosage: 1.5 MILLIGRAM, BID
     Route: 048
     Dates: start: 20170810, end: 20170919
  43. HALOPERIDOL [Concomitant]
     Active Substance: HALOPERIDOL
     Dosage: 1.5 MILLIGRAM, BID (0.5 DAY)
     Route: 048
     Dates: start: 20170810, end: 20170909
  44. HALOPERIDOL [Concomitant]
     Active Substance: HALOPERIDOL
     Dosage: 1.5 MILLIGRAM, PRN
     Route: 058
     Dates: start: 20170919, end: 20170920
  45. MICONAZOLE [Concomitant]
     Active Substance: MICONAZOLE
     Dosage: 20 MILLIGRAM
     Route: 048
     Dates: start: 20170918, end: 20170920
  46. DOMPERIDONE [Concomitant]
     Active Substance: DOMPERIDONE
     Indication: Product used for unknown indication
     Dosage: 10 MILLIGRAM, QD
     Route: 048
     Dates: start: 20170810, end: 20170919
  47. DOMPERIDONE [Concomitant]
     Active Substance: DOMPERIDONE
     Dosage: 10 MILLIGRAM, Q8H,10 MILLIGRAM, 3 DOSE, DAILY
     Route: 048
     Dates: start: 20170810, end: 20170919
  48. DOMPERIDONE [Concomitant]
     Active Substance: DOMPERIDONE
     Dosage: 10 MILLIGRAM, TID, 0.5 (0.3 DAY)
     Route: 048
     Dates: start: 20170810, end: 20170919
  49. CHLORAMPHENICOL [Concomitant]
     Active Substance: CHLORAMPHENICOL
     Indication: Product used for unknown indication
     Dosage: 1 PERCENT
     Route: 047
     Dates: start: 20170918, end: 20170920
  50. ONDANSETRON [Concomitant]
     Active Substance: ONDANSETRON
     Indication: Product used for unknown indication
     Dosage: 8 MILLIGRAM, QD (0.3 DAY)
     Route: 048
     Dates: start: 20170809, end: 20170812
  51. ACETAMINOPHEN\BUCLIZINE HYDROCHLORIDE\CODEINE [Concomitant]
     Active Substance: ACETAMINOPHEN\BUCLIZINE HYDROCHLORIDE\CODEINE
     Indication: Product used for unknown indication
     Dosage: PRN (AS NEEDED/ AS NECESSARY)
     Route: 048
     Dates: start: 2017
  52. NYSTATIN [Concomitant]
     Active Substance: NYSTATIN
     Indication: Product used for unknown indication
     Dosage: 0.25,DAY,1000 UNIT QID
     Route: 048
     Dates: start: 20170904, end: 20170919
  53. CLOTRIMAZOLE [Concomitant]
     Active Substance: CLOTRIMAZOLE
     Indication: Product used for unknown indication
     Dosage: 1 PERCENT, TID (0.3 DAY)
     Route: 061
     Dates: start: 20170918, end: 20170920
  54. CALCIUM\CHOLECALCIFEROL [Concomitant]
     Active Substance: CALCIUM\CHOLECALCIFEROL
     Indication: Hypocalcaemia
     Dosage: UNK
     Route: 048
     Dates: start: 20151231, end: 20170919
  55. ZOPICLONE [Concomitant]
     Active Substance: ZOPICLONE
     Indication: Product used for unknown indication
     Dosage: 3.75 MILLIGRAM
     Route: 048
     Dates: start: 20170825, end: 20170919
  56. ZOPICLONE [Concomitant]
     Active Substance: ZOPICLONE
     Dosage: UNK
     Route: 065
  57. CHLORPHENIRAMINE MALEATE [Concomitant]
     Active Substance: CHLORPHENIRAMINE MALEATE
     Indication: Prophylaxis
     Dosage: 30 MILLIGRAM, QW ((START:22-OCT-2015)
     Route: 042
     Dates: end: 20160222
  58. CHLORPHENIRAMINE MALEATE [Concomitant]
     Active Substance: CHLORPHENIRAMINE MALEATE
     Dosage: 100 MILLIGRAM, QW
     Route: 042
     Dates: start: 20151022, end: 20160222
  59. CHLORPHENIRAMINE MALEATE [Concomitant]
     Active Substance: CHLORPHENIRAMINE MALEATE
     Dosage: 10 MILLIGRAM, Q3W
     Route: 042
     Dates: start: 20151022, end: 20160222
  60. CALCIUM CARBONATE [Concomitant]
     Active Substance: CALCIUM CARBONATE
     Indication: Product used for unknown indication
     Dosage: UNK
     Route: 065
     Dates: start: 20151231, end: 20170919

REACTIONS (19)
  - Rectal haemorrhage [Fatal]
  - Asthenia [Recovered/Resolved]
  - Neuropathy peripheral [Recovered/Resolved]
  - Hydronephrosis [Recovered/Resolved]
  - Oral candidiasis [Recovered/Resolved]
  - Vulvovaginal candidiasis [Recovered/Resolved]
  - Conjunctivitis [Recovered/Resolved]
  - Migraine [Not Recovered/Not Resolved]
  - Hypocalcaemia [Not Recovered/Not Resolved]
  - Abnormal sensation in eye [Recovered/Resolved]
  - Dyschezia [Not Recovered/Not Resolved]
  - Oropharyngeal pain [Recovered/Resolved]
  - Lethargy [Not Recovered/Not Resolved]
  - Decreased appetite [Recovered/Resolved]
  - Nasopharyngitis [Recovered/Resolved]
  - Depression [Not Recovered/Not Resolved]
  - Insomnia [Recovered/Resolved]
  - Nausea [Recovered/Resolved]
  - Urinary tract infection [Recovered/Resolved]

NARRATIVE: CASE EVENT DATE: 20151229
